FAERS Safety Report 22606600 (Version 1)
Quarter: 2023Q2

REPORT INFORMATION
  Report Type: Spontaneous
  Country: US (occurrence: None)
  Receive Date: 20230614
  Receipt Date: 20230614
  Transmission Date: 20230721
  Serious: Yes (Disabling, Other)
  Sender: FDA-Public Use
  Company Number: None

PATIENT
  Age: 55 Year
  Sex: Female
  Weight: 56.7 kg

DRUGS (2)
  1. LIDOCAINE [Suspect]
     Active Substance: LIDOCAINE
  2. LEVOFLOXACIN [Concomitant]
     Dosage: FREQUENCY : ONCE;?
     Route: 042
     Dates: start: 20230517, end: 20230517

REACTIONS (8)
  - Flushing [None]
  - Headache [None]
  - Erythema [None]
  - Rash [None]
  - Vision blurred [None]
  - Pain [None]
  - Gastroenteritis viral [None]
  - Staphylococcal infection [None]

NARRATIVE: CASE EVENT DATE: 20230517
